FAERS Safety Report 8017545-8 (Version None)
Quarter: 2011Q4

REPORT INFORMATION
  Report Type: 
  Country: None (occurrence: None)
  Receive Date: 20111228
  Receipt Date: 20111228
  Transmission Date: 20120403
  Serious: Yes (Life-Threatening, Hospitalization, Disabling, Other)
  Sender: FDA-Public Use
  Company Number: None

PATIENT
  Sex: Female
  Weight: 99.7913 kg

DRUGS (1)
  1. TIZANIDINE HCL [Suspect]
     Indication: MUSCLE SPASMS
     Dosage: 1-4MG DAILY MOUTH
     Route: 048
     Dates: start: 20110901, end: 20111107

REACTIONS (8)
  - FEELING ABNORMAL [None]
  - ENCEPHALOPATHY [None]
  - TREMOR [None]
  - HYPERSOMNIA [None]
  - DIZZINESS [None]
  - HEPATITIS [None]
  - IMPAIRED WORK ABILITY [None]
  - POSTURE ABNORMAL [None]
